FAERS Safety Report 10509534 (Version 1)
Quarter: 2014Q4

REPORT INFORMATION
  Report Type: Spontaneous
  Country: KR (occurrence: KR)
  Receive Date: 20141009
  Receipt Date: 20141009
  Transmission Date: 20150528
  Serious: Yes (Other)
  Sender: FDA-Public Use
  Company Number: PHHY2014KR130630

PATIENT
  Age: 52 Year
  Sex: Male

DRUGS (5)
  1. ETHAMBUTOL [Suspect]
     Active Substance: ETHAMBUTOL HYDROCHLORIDE
     Indication: PULMONARY TUBERCULOSIS
     Route: 065
     Dates: end: 201104
  2. LEVOFLOXACIN. [Concomitant]
     Active Substance: LEVOFLOXACIN
     Indication: PRODUCT USED FOR UNKNOWN INDICATION
     Route: 065
  3. CISPLATIN. [Concomitant]
     Active Substance: CISPLATIN
     Indication: NASOPHARYNGEAL CANCER
     Route: 065
     Dates: end: 201001
  4. PYRAZINAMIDE. [Suspect]
     Active Substance: PYRAZINAMIDE
     Indication: PULMONARY TUBERCULOSIS
     Route: 065
     Dates: end: 201104
  5. RIFAMPICIN [Suspect]
     Active Substance: RIFAMPIN
     Indication: PULMONARY TUBERCULOSIS
     Route: 065
     Dates: end: 201104

REACTIONS (11)
  - Macule [Recovered/Resolved]
  - Purpura [Recovered/Resolved]
  - Skin hyperpigmentation [Recovered/Resolved]
  - Erythema dyschromicum perstans [Recovered/Resolved]
  - Oral disorder [Recovered/Resolved]
  - Rash erythematous [Recovered/Resolved]
  - Rash [Recovered/Resolved]
  - Drug eruption [Recovered/Resolved]
  - Lichenoid keratosis [Recovered/Resolved]
  - Lichen planus [Recovered/Resolved]
  - Nasopharyngeal cancer [Unknown]
